FAERS Safety Report 24013118 (Version 1)
Quarter: 2024Q2

REPORT INFORMATION
  Report Type: Report from Study
  Country: GB (occurrence: GB)
  Receive Date: 20240626
  Receipt Date: 20240626
  Transmission Date: 20240715
  Serious: Yes (Other)
  Sender: FDA-Public Use
  Company Number: GB-ABBVIE-5813831

PATIENT
  Age: 77 Year
  Sex: Female

DRUGS (1)
  1. SKYRIZI [Suspect]
     Active Substance: RISANKIZUMAB-RZAA
     Indication: Crohn^s disease
     Dosage: UNIT DOSE 1.00 EA, FORM STRENGTH 360MG/2.4ML
     Route: 058

REACTIONS (11)
  - Cerebrovascular accident [Unknown]
  - Memory impairment [Unknown]
  - Hypertension [Unknown]
  - Fall [Unknown]
  - Arthropathy [Unknown]
  - Malaise [Unknown]
  - Transient ischaemic attack [Unknown]
  - Arthritis [Unknown]
  - Transient ischaemic attack [Recovered/Resolved]
  - Cerebrovascular accident [Recovered/Resolved]
  - Malaise [Recovered/Resolved]

NARRATIVE: CASE EVENT DATE: 20040101
